FAERS Safety Report 15788511 (Version 4)
Quarter: 2025Q2

REPORT INFORMATION
  Report Type: Report from Study
  Country: US (occurrence: US)
  Receive Date: 20190104
  Receipt Date: 20250509
  Transmission Date: 20250717
  Serious: Yes (Other)
  Sender: TAKEDA
  Company Number: US-SHIRE-US201900130

PATIENT
  Sex: Female
  Weight: 77 kg

DRUGS (3)
  1. ICATIBANT [Suspect]
     Active Substance: ICATIBANT ACETATE
     Indication: Immune system disorder
  2. ICATIBANT [Suspect]
     Active Substance: ICATIBANT ACETATE
     Indication: Hereditary angioedema
  3. TAKHZYRO [Suspect]
     Active Substance: LANADELUMAB-FLYO
     Indication: Product used for unknown indication
     Dosage: 300 MILLIGRAM, Q2WEEKS
     Dates: start: 20191016

REACTIONS (6)
  - Blindness unilateral [Unknown]
  - Cerebrovascular accident [Unknown]
  - Malaise [Unknown]
  - Weight decreased [Unknown]
  - Product use issue [Not Recovered/Not Resolved]
  - Illness [Not Recovered/Not Resolved]
